FAERS Safety Report 9260731 (Version 1)
Quarter: 2013Q2

REPORT INFORMATION
  Report Type: Spontaneous
  Country: CN (occurrence: CN)
  Receive Date: 20130429
  Receipt Date: 20130429
  Transmission Date: 20140414
  Serious: Yes (Other)
  Sender: FDA-Public Use
  Company Number: CN-ELI_LILLY_AND_COMPANY-CN201304007953

PATIENT
  Sex: 0

DRUGS (5)
  1. PEMETREXED [Suspect]
     Indication: NON-SMALL CELL LUNG CANCER METASTATIC
     Dosage: 500 MG/M2, OTHER
  2. CISPLATIN [Concomitant]
     Indication: NON-SMALL CELL LUNG CANCER METASTATIC
     Dosage: 75 MG/M2, OTHER
  3. DEXAMETHASONE [Concomitant]
     Indication: PROPHYLAXIS
     Dosage: 3.75 MG, BID
     Route: 048
  4. FOLIC ACID [Concomitant]
     Dosage: 400 UG, QD
     Route: 048
  5. VITAMIN B12 [Concomitant]
     Dosage: 1000 UG, OTHER

REACTIONS (1)
  - Headache [Unknown]
